FAERS Safety Report 4836987-2 (Version None)
Quarter: 2005Q4

REPORT INFORMATION
  Report Type: 
  Country: None (occurrence: None)
  Receive Date: 20051121
  Receipt Date: 20051114
  Transmission Date: 20060501
  Serious: Yes (Other)
  Sender: FDA-Public Use
  Company Number: GBWYE144816NOV05

PATIENT
  Age: 16 Year
  Sex: Female

DRUGS (3)
  1. MINOCIN [Suspect]
     Indication: ACNE
     Dosage: 50 MG 2X PER 1 DAY
     Route: 048
     Dates: start: 20051011, end: 20051001
  2. DIANETTE (CYPROTERONE ACETATE/ETHINYLESTRADIOL) [Concomitant]
  3. MICROGYNON (ETHINYLESTRADIOL/LEVONORGESTREL) [Concomitant]

REACTIONS (4)
  - ARTHRALGIA [None]
  - HYPERSENSITIVITY [None]
  - RASH GENERALISED [None]
  - SWELLING FACE [None]
